FAERS Safety Report 6618427-6 (Version None)
Quarter: 2010Q1

REPORT INFORMATION
  Report Type: 
  Country: None (occurrence: None)
  Receive Date: 20100308
  Receipt Date: 20100304
  Transmission Date: 20100710
  Serious: Yes (Hospitalization)
  Sender: FDA-Public Use
  Company Number: Z0003231A

PATIENT
  Sex: Female
  Weight: 55 kg

DRUGS (4)
  1. PAZOPANIB [Suspect]
     Dosage: 800MG PER DAY
     Route: 048
     Dates: start: 20100127
  2. PANTOZOL [Concomitant]
     Indication: PROPHYLAXIS
     Dosage: 20MG SINGLE DOSE
     Route: 048
     Dates: start: 20100212, end: 20100216
  3. PERENTEROL [Concomitant]
     Dosage: 50MG THREE TIMES PER DAY
     Route: 048
     Dates: start: 20100216, end: 20100216
  4. EMBOLEX [Concomitant]
     Indication: PROPHYLAXIS
     Dosage: 3000IU PER DAY
     Route: 058
     Dates: start: 20100212, end: 20100212

REACTIONS (1)
  - PYREXIA [None]
